FAERS Safety Report 25543159 (Version 1)
Quarter: 2025Q3

REPORT INFORMATION
  Report Type: Spontaneous
  Country: US (occurrence: US)
  Receive Date: 20250711
  Receipt Date: 20250711
  Transmission Date: 20251020
  Serious: Yes (Hospitalization, Other)
  Sender: ABBVIE
  Company Number: US-ABBVIE-6360542

PATIENT
  Age: 30 Year
  Sex: Female

DRUGS (1)
  1. CEFTAROLINE [Suspect]
     Active Substance: CEFTAROLINE
     Indication: Product used for unknown indication
     Route: 042
     Dates: end: 202402

REACTIONS (14)
  - Mycobacterium avium complex infection [Unknown]
  - Tendon disorder [Unknown]
  - Osteomyelitis [Unknown]
  - Abscess limb [Unknown]
  - Bone disorder [Unknown]
  - Musculoskeletal chest pain [Unknown]
  - Arthropathy [Unknown]
  - Hospitalisation [Recovered/Resolved]
  - Drug-induced liver injury [Unknown]
  - Arthritis infective [Unknown]
  - Arthritis bacterial [Unknown]
  - Subcutaneous abscess [Unknown]
  - Carpal tunnel syndrome [Unknown]
  - Osteoarthritis [Unknown]

NARRATIVE: CASE EVENT DATE: 20220101
